FAERS Safety Report 15075390 (Version 1)
Quarter: 2018Q2

REPORT INFORMATION
  Report Type: Report from Study
  Country: US (occurrence: US)
  Receive Date: 20180627
  Receipt Date: 20180627
  Transmission Date: 20180711
  Serious: Yes (Hospitalization, Other)
  Sender: FDA-Public Use
  Company Number: US-SAOL THERAPEUTICS-0700918735

PATIENT
  Age: 62 Year
  Sex: Female

DRUGS (28)
  1. BUPIVACAINE. [Suspect]
     Active Substance: BUPIVACAINE
     Dosage: 26.440 MG, \DAY
     Route: 037
     Dates: start: 20140829
  2. DILAUDID [Suspect]
     Active Substance: HYDROMORPHONE HYDROCHLORIDE
     Dosage: 2.1800 MG, \DAY
     Dates: start: 20141002
  3. DILAUDID [Suspect]
     Active Substance: HYDROMORPHONE HYDROCHLORIDE
     Dosage: 1.5033 MG, \DAY
     Route: 037
     Dates: start: 20141103
  4. COMPOUNDED BACLOFEN [Suspect]
     Active Substance: BACLOFEN
     Dosage: 176.27 ?G, \DAY
     Route: 037
     Dates: start: 20140829
  5. COMPOUNDED BACLOFEN [Suspect]
     Active Substance: BACLOFEN
     Dosage: 150.33 ?G, \DAY
     Route: 037
     Dates: start: 20141103
  6. COMPOUNDED BACLOFEN [Suspect]
     Active Substance: BACLOFEN
     Dosage: 218.00 ?G, \DAY- MAX
     Route: 037
     Dates: start: 20141002
  7. DILAUDID [Suspect]
     Active Substance: HYDROMORPHONE HYDROCHLORIDE
     Dosage: 1.6511 MG, \DAY
     Route: 037
     Dates: start: 20140829, end: 20140829
  8. DILAUDID [Suspect]
     Active Substance: HYDROMORPHONE HYDROCHLORIDE
     Dosage: 1.6511 MG, \DAY
     Route: 037
     Dates: start: 20150312
  9. DILAUDID [Suspect]
     Active Substance: HYDROMORPHONE HYDROCHLORIDE
     Dosage: 1.762 MG, \DAY
     Dates: start: 20141002, end: 20141002
  10. CLONIDINE. [Suspect]
     Active Substance: CLONIDINE
     Route: 037
  11. BUPIVACAINE. [Suspect]
     Active Substance: BUPIVACAINE
     Dosage: 24.766 MG, \DAY
     Route: 037
     Dates: start: 20140829, end: 20140829
  12. BUPIVACAINE. [Suspect]
     Active Substance: BUPIVACAINE
     Dosage: 24.766 MG, \DAY
     Route: 037
     Dates: start: 20150312
  13. BUPIVACAINE. [Suspect]
     Active Substance: BUPIVACAINE
     Dosage: 35.075 MG, \DAY - MAX
     Dates: start: 20141002, end: 20141002
  14. DILAUDID [Suspect]
     Active Substance: HYDROMORPHONE HYDROCHLORIDE
     Dosage: 1.7627 MG, \DAY
     Route: 037
     Dates: start: 20140829
  15. COMPOUNDED BACLOFEN [Suspect]
     Active Substance: BACLOFEN
     Dosage: 198.26 ?G, \DAY MAX
     Route: 037
     Dates: start: 20141103
  16. COMPOUNDED BACLOFEN [Suspect]
     Active Substance: BACLOFEN
     Dosage: 160.21 ?G, \DAY
     Dates: start: 20141002
  17. BUPIVACAINE. [Suspect]
     Active Substance: BUPIVACAINE
     Dosage: 26.440 MG, \DAY
     Route: 037
     Dates: start: 20141002, end: 20141002
  18. COMPOUNDED BACLOFEN [Suspect]
     Active Substance: BACLOFEN
     Indication: PAIN
     Dosage: 165.11 ?G, \DAY
     Route: 037
     Dates: start: 20140829, end: 20140829
  19. COMPOUNDED BACLOFEN [Suspect]
     Active Substance: BACLOFEN
     Dosage: 233.83 ?G, \DAY - MAX
     Dates: start: 20141002, end: 20141002
  20. BUPIVACAINE. [Suspect]
     Active Substance: BUPIVACAINE
     Dosage: 24.031 MG, \DAY
     Dates: start: 20141002
  21. BUPIVACAINE. [Suspect]
     Active Substance: BUPIVACAINE
     Dosage: 32.700 MG, \DAY - MAX
     Dates: start: 20141002
  22. DILAUDID [Suspect]
     Active Substance: HYDROMORPHONE HYDROCHLORIDE
     Dosage: 2.3383 MG, \DAY- MAX
     Dates: start: 20141002, end: 20141002
  23. DILAUDID [Suspect]
     Active Substance: HYDROMORPHONE HYDROCHLORIDE
     Dosage: 1.982 MG, \DAY
     Route: 037
     Dates: start: 20141103
  24. COMPOUNDED BACLOFEN [Suspect]
     Active Substance: BACLOFEN
     Dosage: 165.11 ?G, \DAY
     Route: 037
     Dates: start: 20150312
  25. BUPIVACAINE. [Suspect]
     Active Substance: BUPIVACAINE
     Dosage: 29.739 MG\DAY -MAX
     Route: 037
     Dates: start: 20141103
  26. COMPOUNDED BACLOFEN [Suspect]
     Active Substance: BACLOFEN
     Dosage: 176.27 ?G/ML, \DAY
     Dates: start: 20141002, end: 20141002
  27. BUPIVACAINE. [Suspect]
     Active Substance: BUPIVACAINE
     Dosage: 22.550 MG, \DAY
     Route: 037
     Dates: start: 20141103
  28. DILAUDID [Suspect]
     Active Substance: HYDROMORPHONE HYDROCHLORIDE
     Dosage: 1.6021 MG, \DAY
     Dates: start: 20141002

REACTIONS (12)
  - Sedation [Recovered/Resolved]
  - Vomiting [Recovered/Resolved]
  - Hypertension [Recovered/Resolved]
  - Device battery issue [Unknown]
  - Drug withdrawal syndrome [Recovered/Resolved]
  - Asthenia [Recovered/Resolved]
  - Off label use [Unknown]
  - Adverse drug reaction [Recovered/Resolved]
  - Pain [Recovered/Resolved]
  - Fatigue [Unknown]
  - Nausea [Recovered/Resolved]
  - Tremor [Recovered/Resolved]

NARRATIVE: CASE EVENT DATE: 20140829
